FAERS Safety Report 10196809 (Version 4)
Quarter: 2014Q2

REPORT INFORMATION
  Report Type: Spontaneous
  Country: JP (occurrence: JP)
  Receive Date: 20140527
  Receipt Date: 20140617
  Transmission Date: 20141212
  Serious: Yes (Hospitalization, Other)
  Sender: FDA-Public Use
  Company Number: JP-PFIZER INC-2014136580

PATIENT
  Age: 48 Year
  Sex: Female

DRUGS (9)
  1. AMOXAN [Suspect]
     Indication: DEPRESSION
     Dosage: UNK
     Route: 048
  2. SOLANAX [Suspect]
     Indication: DEPRESSION
     Dosage: UNK
     Route: 048
  3. DEPAS [Suspect]
     Indication: DEPRESSION
     Dosage: UNK
     Route: 048
  4. MAGNESIUM OXIDE [Suspect]
     Dosage: UNK
  5. MICAMLO [Concomitant]
     Dosage: UNK
     Route: 048
     Dates: start: 20140505
  6. PLAVIX [Concomitant]
     Dosage: UNK
     Route: 048
     Dates: start: 20140505
  7. SELARA [Concomitant]
     Dosage: UNK
     Route: 048
     Dates: start: 20140505
  8. CRESTOR [Concomitant]
     Dosage: UNK
     Route: 048
     Dates: start: 20140505
  9. SEROQUEL [Concomitant]
     Dosage: UNK
     Route: 048
     Dates: start: 20140505

REACTIONS (2)
  - Movement disorder [Recovered/Resolved]
  - Blood creatine phosphokinase increased [Recovered/Resolved]
